FAERS Safety Report 5217194-0 (Version None)
Quarter: 2007Q1

REPORT INFORMATION
  Report Type: 
  Country: None (occurrence: None)
  Receive Date: 20070122
  Receipt Date: 20070122
  Transmission Date: 20070707
  Serious: Yes (Hospitalization)
  Sender: FDA-Public Use
  Company Number: None

PATIENT
  Age: 73 Year
  Sex: Male
  Weight: 109.7705 kg

DRUGS (4)
  1. LOSARTAN POTASSIUM [Suspect]
     Dosage: 50 MG PO DAILY
     Route: 048
  2. TERAZOSIN HCL [Suspect]
     Dosage: 2 MG PO QHS
     Route: 048
  3. CLONIDINE [Suspect]
     Dosage: 0.1 MG PO BID
     Route: 048
  4. FUROSEMIDE [Suspect]
     Dosage: 40 MG PO DAILY
     Route: 048

REACTIONS (3)
  - FALL [None]
  - ORTHOSTATIC HYPOTENSION [None]
  - SYNCOPE [None]
